FAERS Safety Report 11156451 (Version 1)
Quarter: 2015Q2

REPORT INFORMATION
  Report Type: Spontaneous
  Country: US (occurrence: None)
  Receive Date: 20150601
  Receipt Date: 20150601
  Transmission Date: 20150821
  Serious: No
  Sender: FDA-Public Use
  Company Number: None

PATIENT
  Age: 58 Year
  Sex: Female
  Weight: 58.51 kg

DRUGS (3)
  1. ANASTROZOLE. [Suspect]
     Active Substance: ANASTROZOLE
     Indication: HEPATIC CANCER
     Route: 048
     Dates: start: 20150207, end: 20150529
  2. SYNTHROID [Concomitant]
     Active Substance: LEVOTHYROXINE SODIUM
  3. LORAZAPAM [Concomitant]
     Active Substance: LORAZEPAM

REACTIONS (12)
  - Paraesthesia [None]
  - Visual impairment [None]
  - Dizziness [None]
  - Visual brightness [None]
  - Rash [None]
  - Pruritus [None]
  - Erythema [None]
  - Fatigue [None]
  - Headache [None]
  - Visual acuity reduced [None]
  - Myalgia [None]
  - Syncope [None]

NARRATIVE: CASE EVENT DATE: 20150529
